FAERS Safety Report 9937163 (Version 1)
Quarter: 2014Q1

REPORT INFORMATION
  Report Type: Spontaneous
  Country: FR (occurrence: FR)
  Receive Date: 20140301
  Receipt Date: 20140301
  Transmission Date: 20141002
  Serious: Yes (Hospitalization)
  Sender: FDA-Public Use
  Company Number: FR-ROCHE-1355691

PATIENT
  Age: 92 Year
  Sex: Male

DRUGS (7)
  1. VALIUM [Suspect]
     Indication: AGITATION
     Route: 048
  2. LASILIX [Concomitant]
  3. TAHOR [Concomitant]
  4. KARDEGIC [Concomitant]
  5. EUPANTOL [Concomitant]
  6. DUPHALAC [Concomitant]
  7. ATARAX (FRANCE) [Concomitant]

REACTIONS (2)
  - Altered state of consciousness [Recovered/Resolved]
  - Dyspnoea [Recovered/Resolved]
